FAERS Safety Report 14995637 (Version 1)
Quarter: 2018Q2

REPORT INFORMATION
  Report Type: Spontaneous
  Country: US (occurrence: US)
  Receive Date: 20180521
  Receipt Date: 20180521
  Transmission Date: 20180711
  Serious: Yes (Other)
  Sender: FDA-Public Use
  Company Number: None

PATIENT
  Age: 25 Year
  Sex: Female
  Weight: 72.1 kg

DRUGS (1)
  1. FERAHEME [Suspect]
     Active Substance: FERUMOXYTOL NON-STOICHIOMETRIC MAGNETITE
     Indication: IRON DEFICIENCY ANAEMIA
     Route: 041
     Dates: start: 20180501, end: 20180501

REACTIONS (3)
  - Flushing [None]
  - Chest discomfort [None]
  - Infusion related reaction [None]

NARRATIVE: CASE EVENT DATE: 20180501
